FAERS Safety Report 9527537 (Version 2)
Quarter: 2013Q4

REPORT INFORMATION
  Report Type: Spontaneous
  Country: US (occurrence: None)
  Receive Date: 20130913
  Receipt Date: 20131104
  Transmission Date: 20140711
  Serious: Yes (Hospitalization, Other)
  Sender: FDA-Public Use
  Company Number: ADR-2013-01600

PATIENT
  Age: 49 Year
  Sex: Male

DRUGS (3)
  1. BACLOFEN [Suspect]
     Indication: PAIN
  2. MORPHINE [Suspect]
  3. CLONIDINE [Suspect]

REACTIONS (6)
  - Dizziness [None]
  - Feeling abnormal [None]
  - Device leakage [None]
  - Overdose [None]
  - Blood pressure increased [None]
  - Diplopia [None]
